FAERS Safety Report 8624843-3 (Version None)
Quarter: 2012Q3

REPORT INFORMATION
  Report Type: 
  Country: None (occurrence: None)
  Receive Date: 20120827
  Receipt Date: 20120816
  Transmission Date: 20120928
  Serious: Yes (Hospitalization)
  Sender: FDA-Public Use
  Company Number: BR-ASTRAZENECA-2012SE59974

PATIENT
  Age: 47 Year
  Sex: Male
  Weight: 130 kg

DRUGS (5)
  1. ATACAND HCT [Suspect]
     Indication: HYPERTENSION
     Dosage: 16/2.5 MG, DAILY
     Route: 048
     Dates: start: 20110801, end: 20120101
  2. METFORMIN HCL [Concomitant]
     Route: 048
  3. ATACAND HCT [Suspect]
     Dosage: 16/2.5 MG, DAILY
     Route: 048
     Dates: start: 20120101, end: 20120601
  4. OMEPRAZOLE [Suspect]
     Indication: PROPHYLAXIS AGAINST GASTROINTESTINAL ULCER
     Route: 048
  5. ASPIRIN PREVENT [Concomitant]
     Route: 048

REACTIONS (2)
  - MYOCARDIAL ISCHAEMIA [None]
  - BLOOD PRESSURE DECREASED [None]
